FAERS Safety Report 16276681 (Version 1)
Quarter: 2019Q2

REPORT INFORMATION
  Report Type: Spontaneous
  Country: US (occurrence: US)
  Receive Date: 20190505
  Receipt Date: 20190505
  Transmission Date: 20190711
  Serious: Yes (Life-Threatening, Hospitalization, Other)
  Sender: FDA-Public Use
  Company Number: None

PATIENT
  Age: 54 Year
  Sex: Female
  Weight: 72 kg

DRUGS (8)
  1. RESTERIL [Concomitant]
  2. XANAX [Concomitant]
     Active Substance: ALPRAZOLAM
  3. ALDACTONE [Concomitant]
     Active Substance: SPIRONOLACTONE
  4. TRINTELLIX [Suspect]
     Active Substance: VORTIOXETINE HYDROBROMIDE
     Indication: MAJOR DEPRESSION
     Dosage: ?          QUANTITY:1 TABLET(S);?
     Route: 048
     Dates: start: 20170228, end: 20190430
  5. TRAMADOL. [Concomitant]
     Active Substance: TRAMADOL
  6. MDUR [Concomitant]
  7. LASONAPRYL [Concomitant]
  8. ZOFRAN [Concomitant]
     Active Substance: ONDANSETRON HYDROCHLORIDE

REACTIONS (3)
  - Nausea [None]
  - Troponin increased [None]
  - Vomiting [None]

NARRATIVE: CASE EVENT DATE: 20190430
